FAERS Safety Report 4569179-5 (Version None)
Quarter: 2005Q1

REPORT INFORMATION
  Report Type: 
  Country: None (occurrence: None)
  Receive Date: 20050203
  Receipt Date: 20050127
  Transmission Date: 20050727
  Serious: Yes (Hospitalization)
  Sender: FDA-Public Use
  Company Number: US-JNJFOC-20050106864

PATIENT
  Age: 67 Year
  Sex: Male

DRUGS (2)
  1. DURAGESIC [Suspect]
     Route: 062
     Dates: start: 20000101
  2. DURAGESIC [Suspect]
     Route: 062
     Dates: start: 20000101

REACTIONS (6)
  - ABDOMINAL PAIN [None]
  - CEREBROVASCULAR ACCIDENT [None]
  - FALL [None]
  - INTERVERTEBRAL DISC DISORDER [None]
  - LOCAL SWELLING [None]
  - MUSCLE SPASMS [None]
